FAERS Safety Report 11594252 (Version 2)
Quarter: 2015Q4

REPORT INFORMATION
  Report Type: Spontaneous
  Country: JP (occurrence: JP)
  Receive Date: 20151005
  Receipt Date: 20151022
  Transmission Date: 20160304
  Serious: Yes (Other)
  Sender: FDA-Public Use
  Company Number: JP-ASTRAZENECA-2015SE95628

PATIENT
  Age: 72 Year
  Sex: Male
  Weight: 67 kg

DRUGS (3)
  1. MEROPENEM. [Suspect]
     Active Substance: MEROPENEM
     Dosage: NON-AZ PRODUCT
     Route: 042
  2. GASTER [Concomitant]
     Active Substance: FAMOTIDINE
  3. BEZATOL SR [Concomitant]
     Active Substance: BEZAFIBRATE
     Route: 048

REACTIONS (2)
  - Confusional state [Unknown]
  - Renal impairment [Unknown]
